FAERS Safety Report 20639854 (Version 2)
Quarter: 2022Q3

REPORT INFORMATION
  Report Type: Report from Study
  Country: US (occurrence: US)
  Receive Date: 20220326
  Receipt Date: 20220911
  Transmission Date: 20221026
  Serious: No
  Sender: FDA-Public Use
  Company Number: US-SA-SAC20220321000238

PATIENT
  Age: 59 Year
  Sex: Male
  Weight: 78.005 kg

DRUGS (2)
  1. DUPIXENT [Suspect]
     Active Substance: DUPILUMAB
     Indication: Dermatitis atopic
     Dosage: 600 MG, 1X
     Route: 058
     Dates: start: 20220125
  2. DUPIXENT [Suspect]
     Active Substance: DUPILUMAB
     Dosage: 300 MG, QOW
     Route: 058
     Dates: start: 20220315

REACTIONS (5)
  - Dyspnoea [Unknown]
  - Hypersensitivity [Unknown]
  - Rash [Unknown]
  - Rash pruritic [Unknown]
  - Emergency care [Unknown]
